FAERS Safety Report 9907298 (Version 1)
Quarter: 2014Q1

REPORT INFORMATION
  Report Type: Report from Study
  Country: MY (occurrence: MY)
  Receive Date: 20140218
  Receipt Date: 20140218
  Transmission Date: 20141002
  Serious: Yes (Death, Other)
  Sender: FDA-Public Use
  Company Number: MY-GILEAD-2014-0094356

PATIENT
  Age: 76 Year
  Sex: Male

DRUGS (1)
  1. TENOFOVIR DISOPROXIL FUMARATE [Suspect]
     Indication: HEPATITIS B
     Dosage: UNK
     Route: 065
     Dates: start: 201111, end: 201112

REACTIONS (2)
  - Treatment failure [Fatal]
  - Viral mutation identified [Not Recovered/Not Resolved]
